FAERS Safety Report 5234626-2 (Version None)
Quarter: 2007Q1

REPORT INFORMATION
  Report Type: 
  Country: None (occurrence: None)
  Receive Date: 20070209
  Receipt Date: 20070130
  Transmission Date: 20070707
  Serious: Yes (Other)
  Sender: FDA-Public Use
  Company Number: US-PFIZER INC-2007008522

PATIENT
  Sex: Female

DRUGS (6)
  1. CHANTIX [Suspect]
     Indication: SMOKING CESSATION THERAPY
  2. CYMBALTA [Interacting]
     Indication: DEPRESSION
     Dates: end: 20070101
  3. SYNTHROID [Concomitant]
  4. XANAX [Concomitant]
  5. ASPIRIN [Concomitant]
  6. MOTRIN [Concomitant]

REACTIONS (8)
  - DEPRESSION [None]
  - DRUG INTERACTION [None]
  - FOOD CRAVING [None]
  - NAUSEA [None]
  - SMOKER [None]
  - SOMNOLENCE [None]
  - STRESS [None]
  - WEIGHT INCREASED [None]
